FAERS Safety Report 24564064 (Version 1)
Quarter: 2024Q4

REPORT INFORMATION
  Report Type: Report from Study
  Country: CA (occurrence: CA)
  Receive Date: 20241030
  Receipt Date: 20241030
  Transmission Date: 20250114
  Serious: Yes (Hospitalization)
  Sender: ABBVIE
  Company Number: CA-ABBVIE-5811524

PATIENT
  Age: 69 Year
  Sex: Male

DRUGS (3)
  1. FOSCARBIDOPA\FOSLEVODOPA [Suspect]
     Active Substance: FOSCARBIDOPA\FOSLEVODOPA
     Indication: Parkinson^s disease
     Dosage: 1.01 ML/HOUR, LAST ADMIN DATE IN 2024
     Route: 058
     Dates: start: 20240604
  2. FOSCARBIDOPA\FOSLEVODOPA [Suspect]
     Active Substance: FOSCARBIDOPA\FOSLEVODOPA
     Dosage: 0.76 ML/HOUR
     Route: 058
  3. CARBIDOPA\LEVODOPA [Suspect]
     Active Substance: CARBIDOPA\LEVODOPA
     Indication: Parkinson^s disease
     Dosage: 100/25 MG CONTROLLED RELEASE

REACTIONS (29)
  - Delirium [Unknown]
  - Infusion site abscess [Unknown]
  - Papule [Not Recovered/Not Resolved]
  - Dermatitis [Recovering/Resolving]
  - Inflammation [Unknown]
  - Inflammation [Recovered/Resolved]
  - Electric shock [Not Recovered/Not Resolved]
  - Gait disturbance [Unknown]
  - Device issue [Unknown]
  - Localised infection [Recovered/Resolved]
  - Nodule [Not Recovered/Not Resolved]
  - Catheter site pain [Not Recovered/Not Resolved]
  - Rash [Not Recovered/Not Resolved]
  - Purulence [Recovered/Resolved]
  - Intentional medical device removal by patient [Unknown]
  - Mobility decreased [Not Recovered/Not Resolved]
  - Somnolence [Recovered/Resolved]
  - Infusion site reaction [Unknown]
  - Pain [Not Recovered/Not Resolved]
  - Injection site discharge [Unknown]
  - Device temperature issue [Unknown]
  - Pneumonia [Unknown]
  - Device loosening [Unknown]
  - Adverse drug reaction [Unknown]
  - Device electrical finding [Not Recovered/Not Resolved]
  - Injection site erythema [Not Recovered/Not Resolved]
  - Frustration tolerance decreased [Unknown]
  - Hypersomnia [Unknown]
  - Catheter site erythema [Not Recovered/Not Resolved]

NARRATIVE: CASE EVENT DATE: 20240101
